FAERS Safety Report 18494065 (Version 1)
Quarter: 2020Q4

REPORT INFORMATION
  Report Type: Spontaneous
  Country: IT (occurrence: IT)
  Receive Date: 20201112
  Receipt Date: 20201112
  Transmission Date: 20210114
  Serious: Yes (Hospitalization, Other)
  Sender: FDA-Public Use
  Company Number: IT-HIKMA PHARMACEUTICALS USA INC.-IT-H14001-20-04992

PATIENT
  Age: 69 Year
  Sex: Male

DRUGS (6)
  1. CETUXIMAB. [Suspect]
     Active Substance: CETUXIMAB
     Route: 065
     Dates: start: 201201
  2. 5-FLUOROURACIL [Suspect]
     Active Substance: FLUOROURACIL
     Indication: CHEMOTHERAPY
     Route: 065
     Dates: start: 201201
  3. LEUCOVORIN. [Suspect]
     Active Substance: LEUCOVORIN
     Indication: CHEMOTHERAPY
     Route: 065
     Dates: start: 201201
  4. IRINOTECAN [Suspect]
     Active Substance: IRINOTECAN
     Indication: CHEMOTHERAPY
     Route: 065
     Dates: start: 201201
  5. 5-FLUOROURACIL [Suspect]
     Active Substance: FLUOROURACIL
     Indication: CHEMOTHERAPY
     Route: 040
     Dates: start: 201201
  6. CETUXIMAB. [Suspect]
     Active Substance: CETUXIMAB
     Indication: CHEMOTHERAPY
     Route: 065
     Dates: start: 201201

REACTIONS (3)
  - Pseudocirrhosis [Unknown]
  - Rash [Unknown]
  - Diarrhoea [Unknown]
